FAERS Safety Report 13119583 (Version 3)
Quarter: 2017Q2

REPORT INFORMATION
  Report Type: Spontaneous
  Country: CZ (occurrence: CZ)
  Receive Date: 20170116
  Receipt Date: 20170626
  Transmission Date: 20170830
  Serious: Yes (Other)
  Sender: FDA-Public Use
  Company Number: CZ-AMGEN-CZESP2017006485

PATIENT
  Age: 68 Year
  Sex: Male

DRUGS (10)
  1. WARFARIN SODIUM. [Concomitant]
     Active Substance: WARFARIN SODIUM
     Indication: PROPHYLAXIS
     Dosage: 5 MG DAILY AND 2.5 EVERY OTHER DAY
     Route: 048
     Dates: start: 201511
  2. TRITACE [Concomitant]
     Active Substance: RAMIPRIL
     Indication: HYPERTENSION
     Dosage: 1.25 MG, QD
     Dates: start: 2015, end: 201612
  3. TRITACE [Concomitant]
     Active Substance: RAMIPRIL
     Dosage: 1.25 MG, QD
     Dates: start: 20170118
  4. SORTIS [Concomitant]
     Active Substance: ATORVASTATIN
     Indication: HYPERCHOLESTEROLAEMIA
     Dosage: 20 MG, QD
     Dates: start: 201511
  5. PROCORALAN [Suspect]
     Active Substance: IVABRADINE
     Indication: CARDIAC FAILURE CHRONIC
     Dosage: 7.5 MG, BID
     Route: 048
     Dates: start: 201511, end: 201605
  6. PROCORALAN [Suspect]
     Active Substance: IVABRADINE
     Dosage: 5 MG, BID
     Route: 048
     Dates: start: 201605
  7. FURON [Concomitant]
     Active Substance: FUROSEMIDE
     Indication: CARDIAC DISORDER
     Dosage: 20 MG, QD
     Route: 048
     Dates: start: 201511
  8. CORDARONE [Concomitant]
     Active Substance: AMIODARONE HYDROCHLORIDE
     Indication: CARDIAC DISORDER
     Dosage: 200 MG, QD
     Route: 048
     Dates: start: 201511
  9. TRITACE [Concomitant]
     Active Substance: RAMIPRIL
     Dosage: 5 MG, QD
     Route: 048
     Dates: start: 201612, end: 20170117
  10. EPLERENONE. [Concomitant]
     Active Substance: EPLERENONE
     Indication: CARDIAC DISORDER
     Dosage: 0.5 DF, QD
     Dates: start: 201511

REACTIONS (4)
  - Bradycardia [Recovering/Resolving]
  - Product use issue [Not Recovered/Not Resolved]
  - Dyspnoea [Recovering/Resolving]
  - Hypotension [Recovering/Resolving]

NARRATIVE: CASE EVENT DATE: 201511
